FAERS Safety Report 18318242 (Version 1)
Quarter: 2020Q3

REPORT INFORMATION
  Report Type: Spontaneous
  Country: US (occurrence: US)
  Receive Date: 20200925
  Receipt Date: 20200925
  Transmission Date: 20201103
  Serious: No
  Sender: FDA-Public Use
  Company Number: None

PATIENT
  Age: 73 Year
  Sex: Male

DRUGS (49)
  1. CONVALESCENT PLASMA [Concomitant]
     Active Substance: HUMAN PLASMA
  2. CHOLECALCIFEROL [Concomitant]
     Active Substance: CHOLECALCIFEROL
  3. TOCILIZUMAB. [Concomitant]
     Active Substance: TOCILIZUMAB
  4. AMLODIPINE [Concomitant]
     Active Substance: AMLODIPINE BESYLATE
  5. LORAZEPAM. [Concomitant]
     Active Substance: LORAZEPAM
  6. METRONIDAZOLE CREAM [Concomitant]
     Active Substance: METRONIDAZOLE
  7. OMEPRAZOLE. [Concomitant]
     Active Substance: OMEPRAZOLE
  8. FINASTERIDE. [Concomitant]
     Active Substance: FINASTERIDE
  9. DEXAMETHASONE. [Concomitant]
     Active Substance: DEXAMETHASONE
  10. LABETALOL [Concomitant]
     Active Substance: LABETALOL\LABETALOL HYDROCHLORIDE
  11. BUDESONIDE. [Concomitant]
     Active Substance: BUDESONIDE
  12. OXYCODONE/ACETAMINOPHEN [Concomitant]
     Active Substance: ACETAMINOPHEN\OXYCODONE HYDROCHLORIDE
  13. FENTANYL. [Suspect]
     Active Substance: FENTANYL
  14. ETOMIDATE. [Concomitant]
     Active Substance: ETOMIDATE
  15. FINASTERIDE. [Concomitant]
     Active Substance: FINASTERIDE
  16. FUROSEMIDE. [Concomitant]
     Active Substance: FUROSEMIDE
  17. ASCORBIC ACID. [Concomitant]
     Active Substance: ASCORBIC ACID
  18. CEFTRIAXONE. [Concomitant]
     Active Substance: CEFTRIAXONE
  19. CEFEPIME [Concomitant]
     Active Substance: CEFEPIME HYDROCHLORIDE
  20. APIXABAN [Concomitant]
     Active Substance: APIXABAN
  21. ASPIRIN. [Concomitant]
     Active Substance: ASPIRIN
  22. ATORVASTATIN [Concomitant]
     Active Substance: ATORVASTATIN
  23. COENZYME Q [Concomitant]
  24. ASPIRIN. [Concomitant]
     Active Substance: ASPIRIN
  25. FUROSEMIDE. [Concomitant]
     Active Substance: FUROSEMIDE
  26. NITROGLYCERIN. [Concomitant]
     Active Substance: NITROGLYCERIN
  27. ACETAMINOPHEN. [Concomitant]
     Active Substance: ACETAMINOPHEN
  28. IPRATROPIUM/ALBUTEROL [Concomitant]
     Active Substance: ALBUTEROL\IPRATROPIUM
  29. HYDRALAZINE [Concomitant]
     Active Substance: HYDRALAZINE HYDROCHLORIDE
  30. CARVEDILOL. [Concomitant]
     Active Substance: CARVEDILOL
  31. CETIRIZINE [Concomitant]
     Active Substance: CETIRIZINE HYDROCHLORIDE
  32. MVI [Concomitant]
     Active Substance: VITAMINS
  33. ATORVASTATIN [Concomitant]
     Active Substance: ATORVASTATIN
  34. AZITHROMYCIN ANHYDROUS. [Concomitant]
     Active Substance: AZITHROMYCIN ANHYDROUS
  35. ENOXAPARIN [Concomitant]
     Active Substance: ENOXAPARIN
  36. DEXTROMETHORPHAN/GUAIFENESIN [Concomitant]
     Active Substance: DEXTROMETHORPHAN\GUAIFENESIN
  37. PREDNISONE. [Concomitant]
     Active Substance: PREDNISONE
  38. REMDESIVIR. [Suspect]
     Active Substance: REMDESIVIR
     Indication: COVID-19
     Dates: start: 20200708, end: 20200711
  39. OMEGA?3 FATTY ACIDS [Concomitant]
     Active Substance: OMEGA-3 FATTY ACIDS
  40. PANTOPRAZOLE [Concomitant]
     Active Substance: PANTOPRAZOLE
  41. ZINC. [Concomitant]
     Active Substance: ZINC
  42. INSULIN LISPRO [Concomitant]
     Active Substance: INSULIN LISPRO
  43. MIDAZOLAM. [Concomitant]
     Active Substance: MIDAZOLAM
  44. DICLOFENAC [Concomitant]
     Active Substance: DICLOFENAC
  45. AMLODIPINE [Concomitant]
     Active Substance: AMLODIPINE BESYLATE
  46. CARVEDILOL. [Concomitant]
     Active Substance: CARVEDILOL
  47. PROPOFOL. [Concomitant]
     Active Substance: PROPOFOL
  48. SUCCINYLCHOLINE [Concomitant]
     Active Substance: SUCCINYLCHOLINE
  49. AZITHROMYCIN ANHYDROUS. [Concomitant]
     Active Substance: AZITHROMYCIN ANHYDROUS

REACTIONS (9)
  - Blood alkaline phosphatase increased [None]
  - International normalised ratio increased [None]
  - Aspartate aminotransferase increased [None]
  - Metabolic encephalopathy [None]
  - Septic shock [None]
  - Blood bilirubin increased [None]
  - Blood potassium increased [None]
  - Alanine aminotransferase increased [None]
  - Blood creatinine increased [None]
